FAERS Safety Report 8365202-0 (Version None)
Quarter: 2012Q2

REPORT INFORMATION
  Report Type: 
  Country: None (occurrence: None)
  Receive Date: 20120516
  Receipt Date: 20120514
  Transmission Date: 20120825
  Serious: Yes (Other)
  Sender: FDA-Public Use
  Company Number: US-ROCHE-1069297

PATIENT
  Sex: Male
  Weight: 89.438 kg

DRUGS (5)
  1. XELODA [Suspect]
     Indication: PANCREATIC CARCINOMA
     Route: 048
     Dates: start: 20120201, end: 20120401
  2. OXYCODONE HCL [Concomitant]
     Indication: PAIN
     Route: 048
  3. XELODA [Suspect]
     Dosage: 14 DAYS ON 7 DAYS OFF
     Route: 048
     Dates: start: 20120510
  4. IRINOTECAN MAYNE [Concomitant]
  5. OXYCONTIN [Concomitant]
     Indication: PAIN
     Route: 048

REACTIONS (5)
  - ATELECTASIS [None]
  - MUSCLE SPASMS [None]
  - ABDOMINAL PAIN [None]
  - BACK PAIN [None]
  - PLEURAL EFFUSION [None]
